FAERS Safety Report 9170611 (Version 1)
Quarter: 2013Q1

REPORT INFORMATION
  Report Type: Spontaneous
  Country: US (occurrence: None)
  Receive Date: 20130312
  Receipt Date: 20130312
  Transmission Date: 20140127
  Serious: Yes (Other)
  Sender: FDA-Public Use
  Company Number: 2013HINLIT0026

PATIENT
  Age: 14 Year
  Sex: Male

DRUGS (4)
  1. ZIDOVUDINE [Suspect]
     Indication: ANTIRETROVIRAL THERAPY
  2. LOPINAVIR\RITONAVIR [Suspect]
     Indication: ANTIRETROVIRAL THERAPY
  3. DIDANOSINE [Suspect]
     Indication: ANTIRETROVIRAL THERAPY
  4. NELFINAVIR (NELFINAVIR) UNKNOWN [Concomitant]

REACTIONS (4)
  - Post streptococcal glomerulonephritis [None]
  - Immune reconstitution inflammatory syndrome [None]
  - Herpes zoster [None]
  - Anaemia [None]
